FAERS Safety Report 8965392 (Version 2)
Quarter: 2013Q1

REPORT INFORMATION
  Report Type: Spontaneous
  Country: GB (occurrence: GB)
  Receive Date: 20121214
  Receipt Date: 20130131
  Transmission Date: 20140127
  Serious: Yes (Other)
  Sender: FDA-Public Use
  Company Number: GB-009507513-1212GBR004972

PATIENT
  Sex: Female

DRUGS (2)
  1. MERCILON [Suspect]
     Indication: CONTRACEPTION
     Dosage: UNK
     Route: 048
     Dates: start: 20120813, end: 20120827
  2. ELLAONE [Suspect]
     Indication: POST COITAL CONTRACEPTION
     Dosage: 30 MG, QD
     Route: 048
     Dates: start: 20120813, end: 20120813

REACTIONS (2)
  - Unintended pregnancy [Recovered/Resolved]
  - Abortion induced [Recovered/Resolved]
